FAERS Safety Report 19794518 (Version 1)
Quarter: 2021Q3

REPORT INFORMATION
  Report Type: Spontaneous
  Country: CO (occurrence: CO)
  Receive Date: 20210907
  Receipt Date: 20210907
  Transmission Date: 20211014
  Serious: Yes (Other)
  Sender: FDA-Public Use
  Company Number: CO-AMGEN-COLSP2021137790

PATIENT
  Age: 20 Year
  Sex: Female

DRUGS (1)
  1. ENBREL [Suspect]
     Active Substance: ETANERCEPT
     Indication: PRODUCT USED FOR UNKNOWN INDICATION
     Dosage: 50 MG, UNSPECIFIED FREQUENCY
     Route: 058
     Dates: end: 202102

REACTIONS (2)
  - Arthritis [Not Recovered/Not Resolved]
  - Malaise [Not Recovered/Not Resolved]
